FAERS Safety Report 5100146-9 (Version None)
Quarter: 2006Q3

REPORT INFORMATION
  Report Type: 
  Country: None (occurrence: None)
  Receive Date: 20060731
  Receipt Date: 20060427
  Transmission Date: 20061208
  Serious: Yes (Hospitalization)
  Sender: FDA-Public Use
  Company Number: US-JNJFOC-20030904438

PATIENT
  Age: 36 Year
  Sex: Female
  Weight: 103.8737 kg

DRUGS (2)
  1. RISPERDAL [Suspect]
     Indication: BIPOLAR DISORDER
     Dosage: SEE IMAGE
     Route: 048
  2. RISPERDAL [Suspect]
     Indication: SCHIZOPHRENIA
     Dosage: SEE IMAGE
     Route: 030
     Dates: start: 20051024

REACTIONS (12)
  - ACUTE SINUSITIS [None]
  - ARTHRALGIA [None]
  - BRONCHITIS [None]
  - CELLULITIS [None]
  - HEADACHE [None]
  - OEDEMA PERIPHERAL [None]
  - PAIN IN EXTREMITY [None]
  - RASH [None]
  - SWELLING FACE [None]
  - URINARY TRACT INFECTION [None]
  - VAGINITIS BACTERIAL [None]
  - VULVOVAGINITIS TRICHOMONAL [None]
